FAERS Safety Report 5367630-4 (Version None)
Quarter: 2007Q2

REPORT INFORMATION
  Report Type: 
  Country: None (occurrence: None)
  Receive Date: 20070620
  Receipt Date: 20070620
  Transmission Date: 20071010
  Serious: No
  Sender: FDA-Public Use
  Company Number: None

PATIENT
  Sex: Female
  Weight: 55.7924 kg

DRUGS (3)
  1. OXYCONTIN [Suspect]
     Indication: BACK PAIN
     Dosage: ONE TIME BID PO
     Route: 048
     Dates: start: 20050101
  2. OXYCONTIN [Suspect]
     Indication: INTERVERTEBRAL DISC DEGENERATION
     Dosage: ONE TIME BID PO
     Route: 048
     Dates: start: 20050101
  3. OXYCONTIN [Suspect]
     Indication: INTERVERTEBRAL DISC PROTRUSION
     Dosage: ONE TIME BID PO
     Route: 048
     Dates: start: 20050101

REACTIONS (1)
  - NO ADVERSE EFFECT [None]
